FAERS Safety Report 4665672-5 (Version None)
Quarter: 2005Q2

REPORT INFORMATION
  Report Type: 
  Country: None (occurrence: None)
  Receive Date: 20050519
  Receipt Date: 20050510
  Transmission Date: 20051028
  Serious: Yes (Life-Threatening)
  Sender: FDA-Public Use
  Company Number: ZA-JNJFOC-20050502382

PATIENT
  Sex: Female
  Weight: 48 kg

DRUGS (3)
  1. REMICADE [Suspect]
     Route: 042
  2. REMICADE [Suspect]
     Indication: CROHN'S DISEASE
     Route: 042
  3. METICORTEN [Concomitant]
     Indication: CROHN'S DISEASE
     Route: 049

REACTIONS (2)
  - INFUSION RELATED REACTION [None]
  - RESPIRATORY ARREST [None]
